FAERS Safety Report 19032844 (Version 1)
Quarter: 2021Q1

REPORT INFORMATION
  Report Type: Spontaneous
  Country: US (occurrence: US)
  Receive Date: 20210319
  Receipt Date: 20210319
  Transmission Date: 20210420
  Serious: No
  Sender: FDA-Public Use
  Company Number: US-THERAPEUTICSMD-2020TMD05860

PATIENT
  Age: 67 Year
  Sex: Female

DRUGS (1)
  1. IMVEXXY [Suspect]
     Active Substance: ESTRADIOL
     Dosage: 1 CAPSULE, 1X/DAY
     Route: 067
     Dates: start: 202012

REACTIONS (1)
  - Vulvovaginal pain [Unknown]

NARRATIVE: CASE EVENT DATE: 202012
